FAERS Safety Report 6301999-9 (Version None)
Quarter: 2009Q3

REPORT INFORMATION
  Report Type: 
  Country: None (occurrence: None)
  Receive Date: 20090807
  Receipt Date: 20090730
  Transmission Date: 20100115
  Serious: Yes (Hospitalization, Disabling, Other)
  Sender: FDA-Public Use
  Company Number: FR-PFIZER INC-2006106014

PATIENT
  Age: 62 Year

DRUGS (5)
  1. TAHOR [Suspect]
     Indication: BLOOD CHOLESTEROL
     Dosage: 10 MG, 1X/DAY (IN THE EVENING)
     Route: 048
     Dates: start: 20041101, end: 20060710
  2. ATENOLOL [Concomitant]
     Indication: HYPERTENSION
     Dosage: 100 UNK, 1X/DAY (IN THE MORNING)
     Route: 048
     Dates: start: 20050415
  3. EFFEXOR [Concomitant]
     Indication: DEPRESSION
     Route: 048
     Dates: start: 20051108
  4. ATEPADENE [Concomitant]
     Indication: MUSCLE SPASMS
     Route: 048
     Dates: start: 20060623
  5. TANGANIL [Concomitant]
     Indication: VERTIGO
     Dosage: 2 DF, 1X/DAY (IN THE MORNING)
     Dates: start: 20060701

REACTIONS (7)
  - ACUTE RESPIRATORY FAILURE [None]
  - ASTHENIA [None]
  - MYALGIA [None]
  - POLYMYOSITIS [None]
  - RESPIRATORY DISORDER [None]
  - RHABDOMYOLYSIS [None]
  - VERTIGO [None]
